FAERS Safety Report 6499256-3 (Version None)
Quarter: 2009Q4

REPORT INFORMATION
  Report Type: 
  Country: None (occurrence: None)
  Receive Date: 20091215
  Receipt Date: 20091208
  Transmission Date: 20100525
  Serious: Yes (Hospitalization)
  Sender: FDA-Public Use
  Company Number: JP-BAYER-200914404BYL

PATIENT
  Age: 77 Year
  Sex: Female

DRUGS (8)
  1. NEXAVAR [Suspect]
     Indication: HEPATIC NEOPLASM MALIGNANT
     Dosage: TOTAL DAILY DOSE: 800 MG  UNIT DOSE: 200 MG
     Route: 048
     Dates: start: 20091102, end: 20091111
  2. NEXAVAR [Suspect]
     Dosage: TOTAL DAILY DOSE: 400 MG  UNIT DOSE: 200 MG
     Route: 048
     Dates: start: 20091112, end: 20091116
  3. PARIET [Concomitant]
     Dosage: UNIT DOSE: 10 MG
     Route: 048
  4. LASIX [Concomitant]
     Dosage: UNIT DOSE: 20 MG
     Route: 048
  5. URSO 250 [Concomitant]
     Dosage: UNIT DOSE: 100 MG
     Route: 048
  6. LIVACT [Concomitant]
     Route: 048
  7. ASPARA K [Concomitant]
     Route: 048
  8. ZOPICOOL [Concomitant]
     Dosage: UNIT DOSE: 7.5 MG
     Route: 048

REACTIONS (3)
  - HEPATIC ENCEPHALOPATHY [None]
  - PALMAR-PLANTAR ERYTHRODYSAESTHESIA SYNDROME [None]
  - STOMATITIS [None]
